FAERS Safety Report 23091649 (Version 3)
Quarter: 2025Q2

REPORT INFORMATION
  Report Type: Spontaneous
  Country: JP (occurrence: JP)
  Receive Date: 20231020
  Receipt Date: 20250401
  Transmission Date: 20250716
  Serious: Yes (Other)
  Sender: ALEXION PHARMACEUTICALS
  Company Number: 2023A236896

PATIENT

DRUGS (3)
  1. IMFINZI [Suspect]
     Active Substance: DURVALUMAB
     Indication: Non-small cell lung cancer
     Dosage: 10 MILLIGRAM/KILOGRAM, Q2W
  2. PREDNISOLONE [Concomitant]
     Active Substance: PREDNISOLONE
     Indication: Arthritis
  3. URSO [Concomitant]
     Active Substance: URSODIOL
     Route: 065

REACTIONS (4)
  - Immune-mediated hepatic disorder [Recovering/Resolving]
  - Radiation pneumonitis [Unknown]
  - Rheumatoid arthritis [Unknown]
  - Scleroderma [Unknown]
